FAERS Safety Report 8588259-0 (Version None)
Quarter: 2012Q3

REPORT INFORMATION
  Report Type: 
  Country: None (occurrence: None)
  Receive Date: 20120803
  Receipt Date: 20120803
  Transmission Date: 20120928
  Serious: Yes (Hospitalization)
  Sender: FDA-Public Use
  Company Number: None

PATIENT
  Age: 74 Year
  Sex: Female
  Weight: 78.6 kg

DRUGS (11)
  1. OMEPRAZOLE [Concomitant]
  2. DILTIAZEM [Concomitant]
  3. LISINOPRIL [Suspect]
     Indication: HYPERTENSION
     Dosage: 40MG DAILY PO CHRONIC
     Route: 048
  4. NEURONTIN [Concomitant]
  5. CELEBREX [Concomitant]
  6. HYDROCHLOROTHIAZIDE [Concomitant]
  7. LEVOTHYROXINE SODIUM [Concomitant]
  8. SAVELLA [Concomitant]
  9. PERCOCET [Concomitant]
  10. REGLAN [Concomitant]
  11. LOTREL [Concomitant]

REACTIONS (1)
  - ANGIOEDEMA [None]
